FAERS Safety Report 5128458-3 (Version None)
Quarter: 2006Q4

REPORT INFORMATION
  Report Type: 
  Country: None (occurrence: None)
  Receive Date: 20061017
  Receipt Date: 20061003
  Transmission Date: 20070319
  Serious: Yes (Other)
  Sender: FDA-Public Use
  Company Number: PHBS2006BR15576

PATIENT
  Age: 40 Year
  Sex: Female
  Weight: 46 kg

DRUGS (4)
  1. INDERAL [Concomitant]
     Indication: CARDIAC DISORDER
     Dosage: 40 MG, BID
  2. CALCIUM GLUCONATE [Concomitant]
  3. ESTRADOT [Suspect]
     Indication: HORMONE REPLACEMENT THERAPY
     Dosage: 50 UG/DAY
     Route: 062
     Dates: start: 20060201, end: 20060701
  4. OSSOPAN [Concomitant]
     Indication: OSTEOPOROSIS
     Dosage: 400 MG/DAY
     Route: 048

REACTIONS (12)
  - AORTIC VALVE INCOMPETENCE [None]
  - CARDIAC DISORDER [None]
  - CARDIAC MURMUR [None]
  - CONDITION AGGRAVATED [None]
  - DEPRESSION [None]
  - ERYTHEMA [None]
  - FEELING HOT [None]
  - INSOMNIA [None]
  - MALAISE [None]
  - MIGRAINE [None]
  - MITRAL VALVE INCOMPETENCE [None]
  - TACHYCARDIA [None]
